FAERS Safety Report 19963258 (Version 1)
Quarter: 2021Q4

REPORT INFORMATION
  Report Type: Spontaneous
  Country: US (occurrence: US)
  Receive Date: 20211016
  Receipt Date: 20211016
  Transmission Date: 20220303
  Serious: Yes (Hospitalization)
  Sender: FDA-Public Use
  Company Number: None

PATIENT
  Age: 74 Year
  Sex: Female
  Weight: 61.65 kg

DRUGS (1)
  1. ALBUTEROL [Suspect]
     Active Substance: ALBUTEROL
     Indication: Pulmonary function test
     Dates: start: 20211012, end: 20211012

REACTIONS (4)
  - Tremor [None]
  - Dyskinesia [None]
  - Fatigue [None]
  - Loss of personal independence in daily activities [None]

NARRATIVE: CASE EVENT DATE: 20211012
